FAERS Safety Report 16937473 (Version 1)
Quarter: 2019Q4

REPORT INFORMATION
  Report Type: Spontaneous
  Country: US (occurrence: US)
  Receive Date: 20191018
  Receipt Date: 20191018
  Transmission Date: 20200122
  Serious: Yes (Other)
  Sender: FDA-Public Use
  Company Number: US-BAUSCH-BL-2019-057784

PATIENT
  Age: 65 Year
  Sex: Female

DRUGS (4)
  1. LATANOPROST. [Suspect]
     Active Substance: LATANOPROST
     Indication: GLAUCOMA
     Route: 047
  2. TIMOLOL MALEATE. [Suspect]
     Active Substance: TIMOLOL MALEATE
     Indication: GLAUCOMA
     Route: 047
  3. PREDNISOLONE SODIUM PHOSPHATE OPHTHALMIC SOLUTION USP 0.125% [Suspect]
     Active Substance: PREDNISOLONE SODIUM PHOSPHATE
     Indication: POSTOPERATIVE CARE
     Route: 047
     Dates: start: 20170528
  4. PREDNISOLONE SODIUM PHOSPHATE OPHTHALMIC SOLUTION USP 0.125% [Suspect]
     Active Substance: PREDNISOLONE SODIUM PHOSPHATE
     Indication: PRODUCT USE IN UNAPPROVED INDICATION

REACTIONS (3)
  - Reaction to preservatives [Recovering/Resolving]
  - Glaucoma [Recovering/Resolving]
  - Product use in unapproved indication [Unknown]

NARRATIVE: CASE EVENT DATE: 20170528
